FAERS Safety Report 6519226-6 (Version None)
Quarter: 2009Q4

REPORT INFORMATION
  Report Type: 
  Country: None (occurrence: None)
  Receive Date: 20091228
  Receipt Date: 20091217
  Transmission Date: 20100525
  Serious: Yes (Other)
  Sender: FDA-Public Use
  Company Number: PHHY2009AU56308

PATIENT
  Sex: Female

DRUGS (3)
  1. COMBIPATCH [Suspect]
     Dosage: 50/140
     Dates: start: 20091214
  2. OROXINE [Concomitant]
     Dosage: UNK
  3. NEXIUM [Concomitant]
     Dosage: 20 MG, QD

REACTIONS (5)
  - ABDOMINAL DISCOMFORT [None]
  - ABDOMINAL DISTENSION [None]
  - ANXIETY [None]
  - INSOMNIA [None]
  - TREMOR [None]
